FAERS Safety Report 7771067-8 (Version None)
Quarter: 2011Q3

REPORT INFORMATION
  Report Type: 
  Country: None (occurrence: None)
  Receive Date: 20110922
  Receipt Date: 20110527
  Transmission Date: 20111222
  Serious: No
  Sender: FDA-Public Use
  Company Number: US-ASTRAZENECA-2011SE33560

PATIENT
  Sex: Female

DRUGS (1)
  1. SEROQUEL XR [Suspect]
     Indication: OFF LABEL USE
     Route: 048
     Dates: start: 20110525, end: 20110525

REACTIONS (3)
  - SINUS DISORDER [None]
  - OFF LABEL USE [None]
  - FEELING HOT [None]
